FAERS Safety Report 5133557-6 (Version None)
Quarter: 2006Q4

REPORT INFORMATION
  Report Type: 
  Country: None (occurrence: None)
  Receive Date: 20061024
  Receipt Date: 20060215
  Transmission Date: 20070319
  Serious: Yes (Hospitalization)
  Sender: FDA-Public Use
  Company Number: PHBS2006JP02629

PATIENT
  Age: 67 Year
  Sex: Female

DRUGS (10)
  1. PARLODEL [Suspect]
     Indication: PARKINSON'S DISEASE
     Dosage: 12.5 MG/DAY
     Route: 048
  2. SYMMETREL [Concomitant]
     Indication: PARKINSON'S DISEASE
     Dosage: 150 MG/DAY
     Route: 048
     Dates: start: 20040501, end: 20050904
  3. CABERGOLINE [Suspect]
     Indication: PARKINSON'S DISEASE
     Dosage: 1 MG/DAY
     Route: 048
     Dates: start: 20040501
  4. LEVODOPA BENSERAZIDE HYDROCHLO [Suspect]
     Indication: PARKINSON'S DISEASE
     Dosage: 600 MG/D
     Route: 048
     Dates: start: 20040501
  5. LEVODOPA BENSERAZIDE HYDROCHLO [Suspect]
     Dosage: 300 MG/D
     Route: 048
  6. FP [Suspect]
     Indication: PARKINSON'S DISEASE
     Dosage: 5 MG/D
     Route: 048
     Dates: start: 20040501, end: 20040911
  7. FP [Suspect]
     Dosage: 2.5 MG/D
     Route: 048
     Dates: end: 20040901
  8. MIDODRINE [Concomitant]
     Dosage: 2 MG/D
     Route: 048
     Dates: start: 20040501
  9. GRAPEFRUIT JUICE [Suspect]
     Dates: start: 20040301
  10. TIAPRIDE [Concomitant]
     Dosage: 25 MG/D
     Route: 048
     Dates: start: 20040929

REACTIONS (3)
  - DYSKINESIA [None]
  - FOOD INTERACTION [None]
  - HALLUCINATION [None]
